FAERS Safety Report 23743287 (Version 4)
Quarter: 2024Q2

REPORT INFORMATION
  Report Type: Spontaneous
  Country: CA (occurrence: CA)
  Receive Date: 20240415
  Receipt Date: 20240521
  Transmission Date: 20240716
  Serious: Yes (Other)
  Sender: FDA-Public Use
  Company Number: CA-AMERICAN REGENT INC-2024001325

PATIENT
  Age: 36 Year
  Sex: Female

DRUGS (1)
  1. VENOFER [Suspect]
     Active Substance: IRON SUCROSE
     Indication: Iron deficiency anaemia
     Dosage: 300 MILLIGRAM 1 EVERY 3 DAYS; 300 MG=15 ML IN 250 ML 0.9 PERCENT NACL (TOTAL VOLUME OF SOLUTION: 265
     Dates: start: 20231222, end: 20231222

REACTIONS (7)
  - Fishbane reaction [Recovering/Resolving]
  - Hot flush [Recovering/Resolving]
  - Rash [Recovering/Resolving]
  - Abdominal pain [Recovering/Resolving]
  - Back pain [Recovering/Resolving]
  - Hypotension [Recovering/Resolving]
  - Nausea [Recovering/Resolving]

NARRATIVE: CASE EVENT DATE: 20231222
